FAERS Safety Report 21581475 (Version 1)
Quarter: 2022Q4

REPORT INFORMATION
  Report Type: Report from Study
  Country: US (occurrence: US)
  Receive Date: 20221111
  Receipt Date: 20221111
  Transmission Date: 20230113
  Serious: Yes (Hospitalization, Other)
  Sender: FDA-Public Use
  Company Number: US-ABBVIE-4194660

PATIENT
  Sex: Female

DRUGS (1)
  1. SKYRIZI [Suspect]
     Active Substance: RISANKIZUMAB-RZAA
     Indication: Psoriasis
     Route: 058

REACTIONS (6)
  - Hospitalisation [Unknown]
  - Vomiting [Unknown]
  - Neck pain [Recovering/Resolving]
  - Epistaxis [Unknown]
  - Head injury [Recovering/Resolving]
  - Seizure [Unknown]
